FAERS Safety Report 23980025 (Version 4)
Quarter: 2025Q1

REPORT INFORMATION
  Report Type: Spontaneous
  Country: US (occurrence: US)
  Receive Date: 20240617
  Receipt Date: 20250213
  Transmission Date: 20250408
  Serious: Yes (Other)
  Sender: SANOFI AVENTIS
  Company Number: US-SA-SAC20240611000826

PATIENT
  Age: 72 Year
  Sex: Female

DRUGS (5)
  1. DUPIXENT [Suspect]
     Active Substance: DUPILUMAB
     Indication: Eczema
     Route: 058
     Dates: start: 202405, end: 202405
  2. DUPIXENT [Suspect]
     Active Substance: DUPILUMAB
     Indication: Dermatitis atopic
     Dosage: 300 MG, QOW
     Route: 058
     Dates: start: 202406, end: 2024
  3. DUPIXENT [Suspect]
     Active Substance: DUPILUMAB
     Dosage: 300 MG, QOW
     Route: 058
     Dates: start: 2024
  4. MOUNJARO [Suspect]
     Active Substance: TIRZEPATIDE
  5. SPRAVATO [Concomitant]
     Active Substance: ESKETAMINE

REACTIONS (15)
  - Diabetes mellitus [Unknown]
  - Suicidal ideation [Unknown]
  - Infection [Recovered/Resolved]
  - Skin discolouration [Unknown]
  - Spinal disorder [Unknown]
  - Rash macular [Unknown]
  - Condition aggravated [Unknown]
  - Skin ulcer [Not Recovered/Not Resolved]
  - Back pain [Unknown]
  - Diarrhoea [Unknown]
  - Dyspepsia [Unknown]
  - Nausea [Unknown]
  - Pruritus [Not Recovered/Not Resolved]
  - Drug ineffective [Not Recovered/Not Resolved]
  - Inappropriate schedule of product administration [Unknown]

NARRATIVE: CASE EVENT DATE: 20240101
